FAERS Safety Report 4529602-9 (Version None)
Quarter: 2004Q4

REPORT INFORMATION
  Report Type: 
  Country: None (occurrence: None)
  Receive Date: 20041214
  Receipt Date: 20041129
  Transmission Date: 20050328
  Serious: Yes (Other)
  Sender: FDA-Public Use
  Company Number: HQWYE758403DEC04

PATIENT
  Sex: Female

DRUGS (2)
  1. ADVIL [Suspect]
     Indication: ANALGESIC EFFECT
     Dosage: AS NEEDED, ORAL
     Route: 048
     Dates: start: 19940101
  2. GUAIPHENESIN (GUAIFENESIN) [Concomitant]

REACTIONS (1)
  - HYPERSENSITIVITY [None]
